FAERS Safety Report 4811508-9 (Version None)
Quarter: 2005Q4

REPORT INFORMATION
  Report Type: 
  Country: None (occurrence: None)
  Receive Date: 20051027
  Receipt Date: 20051017
  Transmission Date: 20060501
  Serious: Yes (Hospitalization)
  Sender: FDA-Public Use
  Company Number: US-ABBOTT-05P-163-0313990-00

PATIENT
  Sex: Female
  Weight: 64.922 kg

DRUGS (9)
  1. OMNICEF [Suspect]
     Indication: UPPER RESPIRATORY TRACT INFECTION
     Dates: start: 20050309, end: 20050319
  2. OMNICEF [Suspect]
     Indication: LABYRINTHITIS
     Dates: start: 20051012
  3. OMNICEF [Suspect]
     Indication: PHARYNGEAL OEDEMA
  4. DIOVAN [Concomitant]
     Indication: BLOOD PRESSURE INCREASED
  5. ESOMEPRAZOLE [Concomitant]
     Indication: GASTROOESOPHAGEAL REFLUX DISEASE
  6. METOPROLOL [Concomitant]
     Indication: BLOOD PRESSURE INCREASED
     Route: 048
     Dates: start: 20051013
  7. MULTI-VITAMINS [Concomitant]
     Indication: VITAMIN SUPPLEMENTATION
  8. CALCIUM WITH VITAMIN D [Concomitant]
     Indication: MINERAL SUPPLEMENTATION
  9. MAGNESIUM CHLORIDE ANHYDROUS [Concomitant]
     Indication: MINERAL SUPPLEMENTATION

REACTIONS (9)
  - ABDOMINAL DISTENSION [None]
  - BACK PAIN [None]
  - DISCOMFORT [None]
  - DIZZINESS [None]
  - DYSSTASIA [None]
  - PANCREATITIS [None]
  - PERICARDIAL EFFUSION [None]
  - PLEURAL EFFUSION [None]
  - SHOULDER PAIN [None]
